FAERS Safety Report 8914563 (Version 1)
Quarter: 2012Q4

REPORT INFORMATION
  Report Type: 
  Country: US (occurrence: US)
  Receive Date: 20121116
  Receipt Date: 20121116
  Transmission Date: 20130627
  Serious: Yes (Other)
  Sender: FDA-Public Use
  Company Number: US-ASTRAZENECA-2012SE85154

PATIENT
  Age: 58 Year
  Sex: Male
  Weight: 72.6 kg

DRUGS (6)
  1. SYMBICORT PMDI [Suspect]
     Indication: CHRONIC OBSTRUCTIVE PULMONARY DISEASE
     Dosage: 160/4.5 TWO PUFFS BID
     Route: 055
     Dates: start: 201201
  2. OMEPRAZOLE [Suspect]
     Indication: ABDOMINAL DISCOMFORT
     Route: 048
  3. ALBUTEROL [Concomitant]
     Indication: CHRONIC OBSTRUCTIVE PULMONARY DISEASE
     Dosage: PRN
     Route: 055
  4. APRODINE [Concomitant]
     Indication: NASAL DECONGESTION THERAPY
     Route: 048
     Dates: start: 201209
  5. LORATADINE [Concomitant]
     Indication: TACHYCARDIA
     Route: 048
     Dates: start: 201209
  6. PAMELOR [Concomitant]
     Indication: DEPRESSION
     Route: 048

REACTIONS (4)
  - Pneumonia [Recovering/Resolving]
  - Dyspnoea [Not Recovered/Not Resolved]
  - Heart rate increased [Unknown]
  - Drug dose omission [Unknown]
